FAERS Safety Report 19085475 (Version 1)
Quarter: 2021Q2

REPORT INFORMATION
  Report Type: Spontaneous
  Country: US (occurrence: US)
  Receive Date: 20210401
  Receipt Date: 20210401
  Transmission Date: 20210717
  Serious: No
  Sender: FDA-Public Use
  Company Number: US-IBSA PHARMA-2020-IBS-00702

PATIENT
  Age: 71 Year

DRUGS (2)
  1. FLECTOR [Suspect]
     Active Substance: DICLOFENAC EPOLAMINE
     Route: 061
  2. FLECTOR [Suspect]
     Active Substance: DICLOFENAC EPOLAMINE
     Dosage: ONE PATCH EVERY 12 (TWELVE) HOURS
     Route: 061
     Dates: start: 20200604

REACTIONS (3)
  - Feeling abnormal [Unknown]
  - Confusional state [Unknown]
  - Pain [Unknown]
